FAERS Safety Report 19380073 (Version 1)
Quarter: 2021Q2

REPORT INFORMATION
  Report Type: Spontaneous
  Country: US (occurrence: US)
  Receive Date: 20210607
  Receipt Date: 20210607
  Transmission Date: 20210717
  Serious: No
  Sender: FDA-Public Use
  Company Number: US-TEVA-2021-US-1914078

PATIENT
  Age: 37 Year

DRUGS (4)
  1. CLARITIN [Concomitant]
     Active Substance: LORATADINE
  2. AMPHETAMINE W/DEXTROAMPHETAMINE ACTAVIS [Suspect]
     Active Substance: AMPHETAMINE\DEXTROAMPHETAMINE
     Indication: ATTENTION DEFICIT HYPERACTIVITY DISORDER
     Route: 065
     Dates: start: 20210305, end: 20210409
  3. FLONASE [Concomitant]
     Active Substance: FLUTICASONE PROPIONATE
  4. ADDERALL [Concomitant]
     Active Substance: AMPHETAMINE ASPARTATE\AMPHETAMINE SULFATE\DEXTROAMPHETAMINE SACCHARATE\DEXTROAMPHETAMINE SULFATE
     Dosage: 3 YEARS AT THIS DOSAGE

REACTIONS (6)
  - Drug ineffective [Recovered/Resolved]
  - Headache [Recovered/Resolved]
  - Somnolence [Unknown]
  - Impaired work ability [Unknown]
  - Product quality issue [Unknown]
  - Fatigue [Recovered/Resolved]

NARRATIVE: CASE EVENT DATE: 2021
